FAERS Safety Report 9259422 (Version 2)
Quarter: 2013Q2

REPORT INFORMATION
  Report Type: Spontaneous
  Country: US (occurrence: US)
  Receive Date: 20130428
  Receipt Date: 20130513
  Transmission Date: 20140414
  Serious: No
  Sender: FDA-Public Use
  Company Number: US-ASTRAZENECA-2012SE23720

PATIENT
  Age: 82 Year
  Sex: Female

DRUGS (13)
  1. ATACAND [Suspect]
     Route: 048
  2. LISINOPRIL [Suspect]
     Route: 048
  3. ASPIRIN [Suspect]
     Route: 065
  4. ZYRTEC [Concomitant]
  5. LIPITOR [Concomitant]
     Indication: BLOOD CHOLESTEROL ABNORMAL
  6. DIAZEPAM [Concomitant]
     Indication: NERVOUSNESS
  7. FLUTICASONE [Concomitant]
     Indication: SINUSITIS
  8. B12 SHOTS [Concomitant]
     Indication: ANAEMIA
  9. VITAMIN D [Concomitant]
  10. ZRYTEC [Concomitant]
  11. ZINC PICOLINATE [Concomitant]
  12. MIRLAX [Concomitant]
  13. ZOLPIDEM [Concomitant]
     Indication: SLEEP DISORDER

REACTIONS (5)
  - Sinusitis [Unknown]
  - Multiple allergies [Unknown]
  - Joint stiffness [Unknown]
  - Arthralgia [Unknown]
  - Haemorrhage [Unknown]
